FAERS Safety Report 10290706 (Version 1)
Quarter: 2014Q3

REPORT INFORMATION
  Report Type: Spontaneous
  Country: US (occurrence: None)
  Receive Date: 20140708
  Receipt Date: 20140708
  Transmission Date: 20150326
  Serious: No
  Sender: FDA-Public Use
  Company Number: None

PATIENT
  Age: 43 Year
  Sex: Female
  Weight: 93.9 kg

DRUGS (1)
  1. CLARITIN [Suspect]
     Active Substance: LORATADINE
     Indication: SEASONAL ALLERGY
     Dosage: 1 DISSOLVE TAB ONCE DAILY TAKEN BY MOUTH
     Route: 048
     Dates: start: 20140616, end: 20140705

REACTIONS (7)
  - Abdominal pain [None]
  - Photosensitivity reaction [None]
  - Depression [None]
  - Hypoaesthesia oral [None]
  - Hypoaesthesia [None]
  - Dizziness [None]
  - Fatigue [None]

NARRATIVE: CASE EVENT DATE: 20140705
